FAERS Safety Report 9029904 (Version 1)
Quarter: 2013Q1

REPORT INFORMATION
  Report Type: Spontaneous
  Country: US (occurrence: US)
  Receive Date: 20130124
  Receipt Date: 20130124
  Transmission Date: 20140127
  Serious: Yes (Other)
  Sender: FDA-Public Use
  Company Number: US-BAYER-2013-007362

PATIENT
  Age: 51 Year
  Sex: Female
  Weight: 90.7 kg

DRUGS (4)
  1. ALKA-SELTZER PLUS FLU FORMULA [Suspect]
     Indication: INFLUENZA
     Dosage: 2 DF, PRN
     Route: 048
     Dates: start: 20130108, end: 20130112
  2. ALKA-SELTZER PLUS COLD AND SINUS [Suspect]
     Indication: INFLUENZA
     Dosage: 2 DF, ONCE
     Route: 048
     Dates: start: 20130113, end: 20130113
  3. ONE-A-DAY NOS [Concomitant]
  4. TUMS [Concomitant]

REACTIONS (3)
  - Ageusia [Not Recovered/Not Resolved]
  - Anosmia [Not Recovered/Not Resolved]
  - Drug ineffective [None]
